FAERS Safety Report 20670023 (Version 3)
Quarter: 2022Q2

REPORT INFORMATION
  Report Type: Spontaneous
  Country: US (occurrence: US)
  Receive Date: 20220404
  Receipt Date: 20220502
  Transmission Date: 20220721
  Serious: Yes (Hospitalization, Other)
  Sender: FDA-Public Use
  Company Number: US-PFIZER INC-202200506414

PATIENT
  Age: 54 Year
  Sex: Female

DRUGS (1)
  1. XELJANZ [Suspect]
     Active Substance: TOFACITINIB CITRATE
     Dosage: 5 MG, 1X/DAY (SHE HAS DROPPED DOWN TO 1 PILL A DAY)

REACTIONS (10)
  - Dehydration [Unknown]
  - COVID-19 pneumonia [Unknown]
  - Respiratory tract infection bacterial [Unknown]
  - Pulmonary fibrosis [Unknown]
  - COVID-19 [Not Recovered/Not Resolved]
  - Amnesia [Unknown]
  - Cardiac disorder [Unknown]
  - Cerebral disorder [Unknown]
  - Off label use [Unknown]
  - Malaise [Unknown]
